FAERS Safety Report 9412918 (Version 2)
Quarter: 2013Q2

REPORT INFORMATION
  Report Type: Spontaneous
  Country: JP (occurrence: None)
  Receive Date: 20130621
  Receipt Date: 20130626
  Transmission Date: 20140414
  Serious: Yes (Other)
  Sender: FDA-Public Use
  Company Number: ENT 2013-0102

PATIENT
  Sex: Female

DRUGS (1)
  1. COMTAN [Suspect]
     Route: 048

REACTIONS (2)
  - Volvulus [None]
  - Incorrect route of drug administration [None]
